FAERS Safety Report 13128300 (Version 2)
Quarter: 2017Q1

REPORT INFORMATION
  Report Type: Spontaneous
  Country: ZA (occurrence: ZA)
  Receive Date: 20170118
  Receipt Date: 20170123
  Transmission Date: 20170428
  Serious: Yes (Other)
  Sender: FDA-Public Use
  Company Number: ZA-PFIZER INC-2017016897

PATIENT
  Age: 61 Year
  Sex: Male

DRUGS (3)
  1. LIPITOR [Suspect]
     Active Substance: ATORVASTATIN CALCIUM
     Indication: DYSLIPIDAEMIA
     Dosage: 20 MG, UNK
  2. COZAAR [Concomitant]
     Active Substance: LOSARTAN POTASSIUM
     Indication: DYSLIPIDAEMIA
     Dosage: 100 MG, UNK
  3. TESTOSTERONE. [Concomitant]
     Active Substance: TESTOSTERONE
     Indication: DYSLIPIDAEMIA
     Dosage: UNK, 6 MONTHLY

REACTIONS (4)
  - Blood creatine phosphokinase increased [Unknown]
  - Muscle rupture [Recovering/Resolving]
  - Haematoma [Recovering/Resolving]
  - Muscle disorder [Recovering/Resolving]

NARRATIVE: CASE EVENT DATE: 201606
